FAERS Safety Report 24689344 (Version 1)
Quarter: 2024Q4

REPORT INFORMATION
  Report Type: Report from Study
  Country: CA (occurrence: CA)
  Receive Date: 20241203
  Receipt Date: 20241203
  Transmission Date: 20250115
  Serious: Yes (Other)
  Sender: CELLTRION
  Company Number: CA-CELLTRION INC.-2023CA021992

PATIENT

DRUGS (5)
  1. ADALIMUMAB-AATY [Suspect]
     Active Substance: ADALIMUMAB-AATY
     Indication: Crohn^s disease
     Dosage: 40 MG, Q2WEEKS
     Route: 058
     Dates: start: 20231018
  2. ADALIMUMAB-AATY [Suspect]
     Active Substance: ADALIMUMAB-AATY
     Dosage: 40 MILLIGRAM; Q2WEEKS (MOST RECENT INJECTION DATE)
     Route: 058
     Dates: start: 20231106
  3. ADALIMUMAB-AATY [Suspect]
     Active Substance: ADALIMUMAB-AATY
     Dosage: SHE DID HER 4 PENS AND WAITED 2 WEEKS AND DONE 2 PENS
     Route: 058
     Dates: start: 20241106
  4. ADALIMUMAB-AATY [Suspect]
     Active Substance: ADALIMUMAB-AATY
     Dosage: DONE 2 PENS
     Route: 058
  5. ADALIMUMAB-AATY [Suspect]
     Active Substance: ADALIMUMAB-AATY
     Dosage: 40 MG, Q2WEEKS
     Route: 058

REACTIONS (8)
  - COVID-19 [Recovered/Resolved]
  - Haematochezia [Not Recovered/Not Resolved]
  - Incorrect dose administered [Recovered/Resolved]
  - Constipation [Not Recovered/Not Resolved]
  - Symptom recurrence [Not Recovered/Not Resolved]
  - Intentional dose omission [Unknown]
  - Incorrect dose administered [Unknown]
  - Therapy interrupted [Not Recovered/Not Resolved]
